FAERS Safety Report 5610896-3 (Version None)
Quarter: 2008Q1

REPORT INFORMATION
  Report Type: 
  Country: None (occurrence: None)
  Receive Date: 20080201
  Receipt Date: 20080120
  Transmission Date: 20080703
  Serious: Yes (Hospitalization)
  Sender: FDA-Public Use
  Company Number: US-AMGEN-STX252125

PATIENT
  Sex: Female

DRUGS (2)
  1. ENBREL [Suspect]
     Indication: RHEUMATOID ARTHRITIS
     Route: 058
     Dates: start: 19991101, end: 20080101
  2. METHOTREXATE [Concomitant]
     Route: 065
     Dates: start: 19990101

REACTIONS (8)
  - ARTHRALGIA [None]
  - INJECTION SITE ERYTHEMA [None]
  - INJECTION SITE SWELLING [None]
  - JOINT DESTRUCTION [None]
  - JOINT INSTABILITY [None]
  - JOINT LOCK [None]
  - RHEUMATOID ARTHRITIS [None]
  - TOOTH ABSCESS [None]
